FAERS Safety Report 12079557 (Version 1)
Quarter: 2016Q1

REPORT INFORMATION
  Report Type: Spontaneous
  Country: CA (occurrence: CA)
  Receive Date: 20160216
  Receipt Date: 20160216
  Transmission Date: 20160526
  Serious: Yes (Other)
  Sender: FDA-Public Use
  Company Number: CA-PFIZER INC-2016084773

PATIENT
  Age: 73 Year
  Sex: Female

DRUGS (15)
  1. CLONAZEPAM. [Concomitant]
     Active Substance: CLONAZEPAM
  2. KRILL OIL [Concomitant]
     Active Substance: DIETARY SUPPLEMENT
  3. MAGNESIUM [Concomitant]
     Active Substance: MAGNESIUM
  4. FLAX OIL (ORGANIC) [Concomitant]
  5. FIXMYSKIN HEALING BALM VANILLA FRAGRANCE [Concomitant]
     Active Substance: HYDROCORTISONE
  6. ELAVIL [Concomitant]
     Active Substance: AMITRIPTYLINE HYDROCHLORIDE
  7. SYNTHROID [Concomitant]
     Active Substance: LEVOTHYROXINE SODIUM
  8. CYTOMEL [Concomitant]
     Active Substance: LIOTHYRONINE SODIUM
  9. ENTERIC COATED ASA [Concomitant]
     Active Substance: ASPIRIN
  10. EVENING PRIMROSE OIL [Concomitant]
     Active Substance: EVENING PRIMROSE OIL
  11. CHOLECALCIFEROL [Concomitant]
     Active Substance: CHOLECALCIFEROL
  12. DUVOID [Concomitant]
     Active Substance: BETHANECHOL CHLORIDE
  13. DOXEPIN [Concomitant]
     Active Substance: DOXEPIN
  14. MULTIVITAMIN /00097801/ [Concomitant]
     Active Substance: VITAMINS
  15. VIBRAMYCIN [Suspect]
     Active Substance: DOXYCYCLINE
     Indication: BACTERIAL INFECTION
     Dosage: 200 MG, 2X/DAY
     Route: 048

REACTIONS (2)
  - Bacterial infection [Not Recovered/Not Resolved]
  - Lyme disease [Not Recovered/Not Resolved]
